FAERS Safety Report 5192771-4 (Version None)
Quarter: 2006Q4

REPORT INFORMATION
  Report Type: 
  Country: None (occurrence: None)
  Receive Date: 20061220
  Receipt Date: 20061212
  Transmission Date: 20070319
  Serious: Yes (Other)
  Sender: FDA-Public Use
  Company Number: S06-USA-03737-01

PATIENT
  Age: 44 Year
  Sex: Female

DRUGS (5)
  1. LEXAPRO [Suspect]
     Indication: DEPRESSION
     Dates: start: 20050301, end: 20050701
  2. SEROQUEL [Suspect]
     Dates: start: 20050301, end: 20060801
  3. ZOLOFT [Suspect]
     Dates: start: 20050301, end: 20060801
  4. ATENOLOL [Concomitant]
  5. INDERAL [Concomitant]

REACTIONS (16)
  - ALCOHOL USE [None]
  - ANXIETY [None]
  - BIPOLAR DISORDER [None]
  - DECREASED APPETITE [None]
  - DIARRHOEA [None]
  - DYSKINESIA [None]
  - HALLUCINATION [None]
  - HALLUCINATIONS, MIXED [None]
  - HEADACHE [None]
  - HYPERHIDROSIS [None]
  - IMPRISONMENT [None]
  - INSOMNIA [None]
  - PANIC ATTACK [None]
  - PSYCHOTIC DISORDER [None]
  - SUICIDE ATTEMPT [None]
  - VOMITING [None]
